FAERS Safety Report 5913559-X (Version None)
Quarter: 2008Q4

REPORT INFORMATION
  Report Type: 
  Country: None (occurrence: None)
  Receive Date: 20081007
  Receipt Date: 20081003
  Transmission Date: 20090506
  Serious: Yes (Life-Threatening, Hospitalization, Other)
  Sender: FDA-Public Use
  Company Number: 2008SP007811

PATIENT
  Age: 59 Year
  Sex: Male
  Weight: 58 kg

DRUGS (3)
  1. PEG-INTRON [Suspect]
     Indication: HEPATITIS C
     Dosage: 80 MCG;QW/SC
     Route: 058
     Dates: start: 20080206, end: 20080917
  2. REBETOL [Suspect]
     Indication: HEPATITIS C
     Dosage: 600 MG;QD;PO 400 MG;QD;PO
     Route: 048
     Dates: start: 20080206, end: 20080225
  3. REBETOL [Suspect]
     Indication: HEPATITIS C
     Dosage: 600 MG;QD;PO 400 MG;QD;PO
     Route: 048
     Dates: start: 20080226, end: 20080312

REACTIONS (7)
  - ANAEMIA [None]
  - CARDIAC FAILURE [None]
  - CARDIAC MURMUR [None]
  - LEFT ATRIAL DILATATION [None]
  - RIGHT VENTRICULAR HYPERTROPHY [None]
  - VENTRICULAR FIBRILLATION [None]
  - VENTRICULAR SEPTAL DEFECT [None]
